FAERS Safety Report 22274309 (Version 1)
Quarter: 2023Q2

REPORT INFORMATION
  Report Type: Spontaneous
  Country: US (occurrence: US)
  Receive Date: 20230502
  Receipt Date: 20230502
  Transmission Date: 20230721
  Serious: No
  Sender: FDA-Public Use
  Company Number: US-AMNEAL PHARMACEUTICALS-2023-AMRX-00738

PATIENT
  Sex: Male
  Weight: 13.605 kg

DRUGS (1)
  1. VIGABATRIN [Suspect]
     Active Substance: VIGABATRIN
     Indication: Infantile spasms
     Dosage: 500MG ONCE IN THE MORNING ,1000MG
     Route: 048
     Dates: start: 202212

REACTIONS (1)
  - Cough [Not Recovered/Not Resolved]
